FAERS Safety Report 6475051 (Version 2)
Quarter: 2014Q3

REPORT INFORMATION
  Report Type: Spontaneous
  Country: DE (occurrence: DE)
  Receive Date: 20071127
  Receipt Date: 20140728
  Transmission Date: 20150326
  Serious: Yes (Hospitalization)
  Sender: FDA-Public Use
  Company Number: DE-RANBAXY-2007US-11514

PATIENT

DRUGS (11)
  1. L-THYROXIN 50 [Suspect]
     Active Substance: LEVOTHYROXINE SODIUM
     Indication: SUICIDE ATTEMPT
     Dosage: 50 UG, SINGLE
     Route: 048
     Dates: start: 20071111, end: 20071111
  2. VERAPAMIL [Suspect]
     Active Substance: VERAPAMIL HYDROCHLORIDE
     Indication: SUICIDE ATTEMPT
     Dosage: 80 MG, SINGLE
     Route: 048
     Dates: start: 20071111, end: 20071111
  3. DECORTIN 5 [Suspect]
     Active Substance: PREDNISONE
     Indication: SUICIDE ATTEMPT
     Dosage: 5 MG, SINGLE
     Route: 048
     Dates: start: 20071111, end: 20071111
  4. KEPPRA [Suspect]
     Active Substance: LEVETIRACETAM
     Indication: SUICIDE ATTEMPT
     Dosage: 1000 MG, SINGLE
     Route: 048
     Dates: start: 20071111, end: 20071111
  5. SEROQUEL [Suspect]
     Active Substance: QUETIAPINE FUMARATE
     Dosage: 600 MG, SINGLE
     Route: 048
     Dates: start: 20071111, end: 20071111
  6. CLONAZEPAM. [Suspect]
     Active Substance: CLONAZEPAM
     Indication: SUICIDE ATTEMPT
     Dosage: UNK
     Route: 048
     Dates: start: 20071111, end: 20071111
  7. LORAZEPAM. [Suspect]
     Active Substance: LORAZEPAM
     Indication: SUICIDE ATTEMPT
     Dosage: 4 MG, SINGLE
     Route: 048
     Dates: start: 20071111, end: 20071111
  8. SEROQUEL [Suspect]
     Active Substance: QUETIAPINE FUMARATE
     Indication: SUICIDE ATTEMPT
     Dosage: 400 MG, SINGLE
     Route: 048
     Dates: start: 20071111, end: 20071111
  9. PREDNISONE. [Suspect]
     Active Substance: PREDNISONE
     Indication: SUICIDE ATTEMPT
     Dosage: 5 MG, SINGLE
     Route: 048
     Dates: start: 20071111, end: 20071111
  10. EUNERPAN [Suspect]
     Active Substance: MELPERONE HYDROCHLORIDE
     Indication: SUICIDE ATTEMPT
     Dosage: 50 MG, SINGLE
     Route: 048
     Dates: start: 20071111, end: 20071111
  11. RIVOTRIL [Suspect]
     Active Substance: CLONAZEPAM
     Indication: SUICIDE ATTEMPT
     Dosage: UNK
     Route: 048
     Dates: start: 20071111, end: 20071111

REACTIONS (3)
  - Intentional product misuse [None]
  - Suicide attempt [Unknown]
  - Somnolence [Unknown]

NARRATIVE: CASE EVENT DATE: 20071111
